FAERS Safety Report 7118753-0 (Version None)
Quarter: 2010Q4

REPORT INFORMATION
  Report Type: 
  Country: None (occurrence: None)
  Receive Date: 20101123
  Receipt Date: 20101119
  Transmission Date: 20110411
  Serious: Yes (Life-Threatening)
  Sender: FDA-Public Use
  Company Number: AU-ASTRAZENECA-2010SE55101

PATIENT
  Age: 18517 Day
  Sex: Male

DRUGS (2)
  1. NEXIUM [Suspect]
     Route: 048
     Dates: start: 20100421, end: 20100505
  2. ASMOL [Concomitant]

REACTIONS (5)
  - ERYTHEMA MULTIFORME [None]
  - PRURITUS [None]
  - SWELLING FACE [None]
  - SWOLLEN TONGUE [None]
  - THROAT TIGHTNESS [None]
